FAERS Safety Report 19489837 (Version 1)
Quarter: 2021Q3

REPORT INFORMATION
  Report Type: Spontaneous
  Country: SI (occurrence: SI)
  Receive Date: 20210704
  Receipt Date: 20210704
  Transmission Date: 20211014
  Serious: Yes (Hospitalization, Other)
  Sender: FDA-Public Use
  Company Number: SI-JNJFOC-20210545014

PATIENT
  Age: 77 Year
  Sex: Male

DRUGS (2)
  1. XARELTO [Suspect]
     Active Substance: RIVAROXABAN
     Indication: ATRIAL FIBRILLATION
     Dosage: 20 MG, UNK
     Route: 048
     Dates: start: 20150115
  2. FRAGMIN [Concomitant]
     Active Substance: DALTEPARIN SODIUM
     Dosage: 5000 IU INTERNATIONAL UNIT(S), QD
     Route: 058

REACTIONS (8)
  - Malaise [Unknown]
  - Pneumonia [Unknown]
  - Immobile [Unknown]
  - Cerebral haematoma [Unknown]
  - Hemiparesis [Unknown]
  - Lower respiratory tract infection [Unknown]
  - Aphasia [Unknown]
  - Paraplegia [Unknown]

NARRATIVE: CASE EVENT DATE: 20210409
